FAERS Safety Report 9714786 (Version 1)
Quarter: 2013Q4

REPORT INFORMATION
  Report Type: Report from Study
  Country: CH (occurrence: CH)
  Receive Date: 20131126
  Receipt Date: 20131126
  Transmission Date: 20140711
  Serious: Yes (Hospitalization)
  Sender: FDA-Public Use
  Company Number: CH-TEVA-447203USA

PATIENT
  Age: 74 Year
  Sex: Female

DRUGS (8)
  1. BENDAMUSTINE [Suspect]
     Indication: B-CELL LYMPHOMA REFRACTORY
     Dosage: UNKNOWN/D
     Route: 042
     Dates: start: 20131008
  2. BENDAMUSTINE [Suspect]
     Dosage: UNKNOWN/D
     Route: 042
     Dates: start: 20131009
  3. RITUXIMAB [Suspect]
     Indication: B-CELL LYMPHOMA REFRACTORY
     Dosage: UNKNOWN/D
     Route: 042
     Dates: start: 20131008
  4. LENALIDOMIDE [Suspect]
     Indication: B-CELL LYMPHOMA REFRACTORY
     Dosage: UNKNOWN/D
     Route: 048
     Dates: start: 20131008
  5. ZOFRAN [Concomitant]
     Indication: PRODUCT USED FOR UNKNOWN INDICATION
     Route: 042
     Dates: start: 20131008, end: 20131009
  6. SOLU-MEDROL [Concomitant]
     Indication: PRODUCT USED FOR UNKNOWN INDICATION
     Route: 042
     Dates: start: 20131008, end: 20131009
  7. TAVEGYL [Concomitant]
     Indication: PRODUCT USED FOR UNKNOWN INDICATION
     Route: 042
     Dates: start: 20131008, end: 20131008
  8. DAFALGAN [Concomitant]
     Indication: PRODUCT USED FOR UNKNOWN INDICATION
     Dates: start: 20131008

REACTIONS (1)
  - Neutropenic colitis [Recovered/Resolved]
